FAERS Safety Report 8473912-X (Version None)
Quarter: 2012Q2

REPORT INFORMATION
  Report Type: 
  Country: None (occurrence: None)
  Receive Date: 20120628
  Receipt Date: 20120627
  Transmission Date: 20120825
  Serious: Yes (Other)
  Sender: FDA-Public Use
  Company Number: US-MYLANLABS-2012S1002216

PATIENT
  Age: 75 Year
  Sex: Female

DRUGS (2)
  1. CLOZAPINE [Suspect]
     Route: 048
     Dates: start: 20120126
  2. CLOZAPINE [Suspect]
     Route: 048
     Dates: end: 20120125

REACTIONS (1)
  - GRANULOCYTOPENIA [None]
